FAERS Safety Report 4838366-0 (Version None)
Quarter: 2005Q4

REPORT INFORMATION
  Report Type: 
  Country: None (occurrence: None)
  Receive Date: 20051123
  Receipt Date: 20051110
  Transmission Date: 20060501
  Serious: Yes (Hospitalization, Other)
  Sender: FDA-Public Use
  Company Number: 2005153542

PATIENT
  Age: 42 Year
  Sex: Male
  Weight: 108.8633 kg

DRUGS (23)
  1. GABAPENTIN [Suspect]
     Indication: NEUROPATHY
     Dosage: (100 MG, DAILY), ORAL
     Route: 048
     Dates: start: 20050901, end: 20051101
  2. GABAPENTIN [Suspect]
     Indication: PARAESTHESIA
     Dosage: (100 MG, DAILY), ORAL
     Route: 048
     Dates: start: 20050901, end: 20051101
  3. LIPITOR [Suspect]
     Indication: BLOOD CHOLESTEROL INCREASED
     Dosage: 20 MG (20 MG, 1 IN 1 D),
  4. LIPITOR [Suspect]
     Indication: BLOOD TRIGLYCERIDES INCREASED
     Dosage: 20 MG (20 MG, 1 IN 1 D),
  5. CELEBREX [Suspect]
     Indication: ARTHRITIS
     Dates: start: 20050101
  6. LYRICA [Suspect]
     Indication: NEUROPATHY
     Dosage: (75 MG,)
     Dates: start: 20051107
  7. LYRICA [Suspect]
     Indication: PARAESTHESIA
     Dosage: (75 MG,)
     Dates: start: 20051107
  8. BEXTRA [Suspect]
     Indication: ARTHRALGIA
     Dates: end: 20050101
  9. ZANTAC [Concomitant]
  10. DOXEPIN (DOXEPIN) [Concomitant]
  11. PREDNISONE [Concomitant]
  12. FLONASE [Concomitant]
  13. XANAX [Concomitant]
  14. DIOVAN HCT [Concomitant]
  15. DARVOCET [Concomitant]
  16. DEXTROSTAT [Concomitant]
  17. ALBUTEROL [Concomitant]
  18. PRILOSEC [Concomitant]
  19. TYLENOL [Concomitant]
  20. TEARS NATURALE (DEXTRAN 70, HYPROMELLOSE) [Concomitant]
  21. FLEXERIL [Concomitant]
  22. ATARAX [Concomitant]
  23. METHYLPREDNISOLONE [Concomitant]

REACTIONS (9)
  - BENIGN INTRACRANIAL HYPERTENSION [None]
  - DEHYDRATION [None]
  - DRUG EFFECT DECREASED [None]
  - HYPOTENSION [None]
  - NEUROPATHY [None]
  - PARTIAL SEIZURES [None]
  - SOMNOLENCE [None]
  - SPINAL OSTEOARTHRITIS [None]
  - TREATMENT NONCOMPLIANCE [None]
